FAERS Safety Report 9684803 (Version 1)
Quarter: 2013Q4

REPORT INFORMATION
  Report Type: Spontaneous
  Country: US (occurrence: US)
  Receive Date: 20131112
  Receipt Date: 20131112
  Transmission Date: 20140711
  Serious: Yes (Other)
  Sender: FDA-Public Use
  Company Number: PHEH2013US023539

PATIENT
  Sex: Female

DRUGS (7)
  1. VIVELLE DOT [Suspect]
     Indication: HOT FLUSH
     Dosage: UNK UKN, UNK
     Route: 062
  2. ARGININE [Suspect]
     Dosage: UNK UKN, UNK
  3. SILENOR [Concomitant]
     Dosage: UNK UKN, UNK
  4. VALIUM [Concomitant]
     Dosage: UNK UKN, UNK
  5. ALLEGRA [Concomitant]
     Indication: SEASONAL ALLERGY
     Dosage: UNK UKN, PRN
  6. OMEGA 3-6-9                        /01333901/ [Concomitant]
     Dosage: UNK UKN, UNK
  7. ONE-A-DAY /NEZ/ [Concomitant]
     Dosage: UNK UKN, UNK

REACTIONS (2)
  - Fall [Unknown]
  - Foot fracture [Recovered/Resolved]
